FAERS Safety Report 19771685 (Version 1)
Quarter: 2021Q3

REPORT INFORMATION
  Report Type: Spontaneous
  Country: IN (occurrence: IN)
  Receive Date: 20210831
  Receipt Date: 20210831
  Transmission Date: 20211014
  Serious: Yes (Life-Threatening, Hospitalization)
  Sender: FDA-Public Use
  Company Number: IN-MYLANLABS-2021M1057760

PATIENT
  Age: 35 Year
  Sex: Female
  Weight: 42 kg

DRUGS (6)
  1. ATROPINE. [Suspect]
     Active Substance: ATROPINE
     Indication: CARDIAC ARREST
     Dosage: 1.8 MILLIGRAM
     Route: 042
  2. EPINEPHRINE. [Suspect]
     Active Substance: EPINEPHRINE
     Indication: AIR EMBOLISM
     Route: 042
  3. LIGNOCAINE                         /00033401/ [Concomitant]
     Active Substance: LIDOCAINE HYDROCHLORIDE
     Indication: EXTRASYSTOLES
     Route: 042
  4. EPINEPHRINE. [Suspect]
     Active Substance: EPINEPHRINE
     Indication: RESUSCITATION
  5. ATROPINE. [Suspect]
     Active Substance: ATROPINE
     Indication: AIR EMBOLISM
     Dosage: 0.6 MILLIGRAM
     Route: 042
  6. EPINEPHRINE. [Suspect]
     Active Substance: EPINEPHRINE
     Indication: CARDIAC ARREST

REACTIONS (1)
  - Therapy non-responder [Unknown]
